FAERS Safety Report 16835455 (Version 1)
Quarter: 2019Q3

REPORT INFORMATION
  Report Type: Spontaneous
  Country: US (occurrence: US)
  Receive Date: 20190920
  Receipt Date: 20190920
  Transmission Date: 20191005
  Serious: No
  Sender: FDA-Public Use
  Company Number: US-AMARIN PHARMA, INC.-2019AMR000089

PATIENT
  Sex: Female
  Weight: 55.84 kg

DRUGS (2)
  1. VASCEPA [Suspect]
     Active Substance: ICOSAPENT ETHYL
     Indication: BLOOD CHOLESTEROL ABNORMAL
     Route: 048
     Dates: start: 201902
  2. VASCEPA [Suspect]
     Active Substance: ICOSAPENT ETHYL
     Indication: LOW DENSITY LIPOPROTEIN

REACTIONS (2)
  - Off label use [Not Recovered/Not Resolved]
  - Prescribed underdose [Not Recovered/Not Resolved]
